FAERS Safety Report 19283587 (Version 3)
Quarter: 2021Q2

REPORT INFORMATION
  Report Type: Spontaneous
  Country: US (occurrence: US)
  Receive Date: 20210520
  Receipt Date: 20210603
  Transmission Date: 20210717
  Serious: Yes (Disabling)
  Sender: FDA-Public Use
  Company Number: US-SA-2021SA156279

PATIENT
  Age: 46 Year
  Sex: Female

DRUGS (2)
  1. CABLIVI [Suspect]
     Active Substance: CAPLACIZUMAB-YHDP
     Indication: THROMBOTIC MICROANGIOPATHY
     Dosage: 11 MG, QD
     Route: 058
     Dates: start: 20210429, end: 202105
  2. RITUXIMAB. [Concomitant]
     Active Substance: RITUXIMAB

REACTIONS (5)
  - Red blood cell count abnormal [Recovering/Resolving]
  - Loss of personal independence in daily activities [Unknown]
  - Weight fluctuation [Unknown]
  - White blood cell count abnormal [Recovering/Resolving]
  - Intentional dose omission [Unknown]
